FAERS Safety Report 17983198 (Version 1)
Quarter: 2020Q3

REPORT INFORMATION
  Report Type: Spontaneous
  Country: AZ (occurrence: AZ)
  Receive Date: 20200706
  Receipt Date: 20200706
  Transmission Date: 20201103
  Serious: No
  Sender: FDA-Public Use
  Company Number: AZ-LUPIN PHARMACEUTICALS INC.-2020-02838

PATIENT
  Age: 59 Year
  Sex: Male

DRUGS (2)
  1. DICLOFENAC [Concomitant]
     Active Substance: DICLOFENAC
     Indication: ACTINIC KERATOSIS
     Dosage: UNK, QD (IN THE MORNING)
     Route: 061
  2. BETAMETHASONE DIPROPIONATE OINTMENT [Suspect]
     Active Substance: BETAMETHASONE DIPROPIONATE
     Indication: ACTINIC KERATOSIS
     Dosage: UNK, QD (AT NIGHT)
     Route: 061

REACTIONS (1)
  - Systemic toxicity [Recovered/Resolved]
